FAERS Safety Report 6023458-3 (Version None)
Quarter: 2008Q4

REPORT INFORMATION
  Report Type: 
  Country: None (occurrence: None)
  Receive Date: 20081226
  Receipt Date: 20081226
  Transmission Date: 20090506
  Serious: No
  Sender: FDA-Public Use
  Company Number: None

PATIENT
  Age: 79 Year
  Sex: Male
  Weight: 90.1 kg

DRUGS (1)
  1. VARENICLINE [Suspect]
     Indication: NICOTINE DEPENDENCE
     Dosage: 1 MG BID PO
     Route: 048
     Dates: start: 20080401, end: 20080801

REACTIONS (4)
  - DIZZINESS [None]
  - FALL [None]
  - LIMB INJURY [None]
  - SYNCOPE [None]
